FAERS Safety Report 12254687 (Version 1)
Quarter: 2016Q2

REPORT INFORMATION
  Report Type: Spontaneous
  Country: US (occurrence: US)
  Receive Date: 20160411
  Receipt Date: 20160411
  Transmission Date: 20160815
  Serious: No
  Sender: FDA-Public Use
  Company Number: US-SA-2016SA011663

PATIENT
  Age: 50 Year
  Sex: Female
  Weight: 43.09 kg

DRUGS (1)
  1. ALLEGRA D-12 HOUR [Suspect]
     Active Substance: FEXOFENADINE HYDROCHLORIDE\PSEUDOEPHEDRINE HYDROCHLORIDE
     Indication: LYME DISEASE
     Dosage: END DATE: 2 DAYS AGO
     Route: 048

REACTIONS (2)
  - Blood pressure increased [Unknown]
  - Product use issue [Unknown]
